FAERS Safety Report 19608404 (Version 1)
Quarter: 2021Q3

REPORT INFORMATION
  Report Type: Spontaneous
  Country: US (occurrence: US)
  Receive Date: 20210722
  Receipt Date: 20210722
  Transmission Date: 20211014
  Serious: No
  Sender: FDA-Public Use
  Company Number: None

PATIENT
  Age: 69 Year
  Sex: Male

DRUGS (1)
  1. DALFAMPRIDINE ER TAB 10MG [Suspect]
     Active Substance: DALFAMPRIDINE
     Route: 048
     Dates: start: 2020

REACTIONS (2)
  - Therapy interrupted [None]
  - Infection [None]

NARRATIVE: CASE EVENT DATE: 20210722
